FAERS Safety Report 6371749-9 (Version None)
Quarter: 2009Q3

REPORT INFORMATION
  Report Type: 
  Country: None (occurrence: None)
  Receive Date: 20090923
  Receipt Date: 20090910
  Transmission Date: 20100115
  Serious: Yes (Hospitalization)
  Sender: FDA-Public Use
  Company Number: US-ROCHE-652868

PATIENT
  Age: 46 Year
  Sex: Female

DRUGS (9)
  1. PEGASYS [Suspect]
     Indication: HEPATITIS C
     Dosage: FORM: PFS
     Route: 065
  2. RIBAVIRIN [Suspect]
     Indication: HEPATITIS C
     Route: 065
  3. VICODIN [Suspect]
     Indication: PAIN
     Route: 065
  4. CENTRUM SILVER [Concomitant]
  5. ZOLPIDEM [Concomitant]
     Dosage: DRUG REPORTED: GENERIC AMBIEN
  6. CITALOPRAM [Concomitant]
  7. IBUPROFEN [Concomitant]
  8. SINGULAIR [Concomitant]
     Dosage: DRUG REPORTED: SINGULAR
  9. ACIPHEX [Concomitant]

REACTIONS (8)
  - ANXIETY [None]
  - BACK DISORDER [None]
  - DEPRESSION [None]
  - HEADACHE [None]
  - NAUSEA [None]
  - PAIN IN EXTREMITY [None]
  - PARANOIA [None]
  - SYRINGE ISSUE [None]
